FAERS Safety Report 10260828 (Version 1)
Quarter: 2014Q2

REPORT INFORMATION
  Report Type: Report from Study
  Country: AR (occurrence: AR)
  Receive Date: 20140626
  Receipt Date: 20140626
  Transmission Date: 20141212
  Serious: Yes (Other)
  Sender: FDA-Public Use
  Company Number: AR-BRISTOL-MYERS SQUIBB COMPANY-21051115

PATIENT
  Age: 68 Year
  Sex: Female

DRUGS (1)
  1. ORENCIA [Suspect]
     Dosage: INTERRUPTED ON 02-JAN-2015(REPORTED AS 2015)
     Route: 042
     Dates: start: 20130525

REACTIONS (1)
  - Arthropathy [Recovering/Resolving]
